FAERS Safety Report 4645252-8 (Version None)
Quarter: 2005Q2

REPORT INFORMATION
  Report Type: 
  Country: None (occurrence: None)
  Receive Date: 20050331
  Receipt Date: 20050208
  Transmission Date: 20051028
  Serious: Yes (Death)
  Sender: FDA-Public Use
  Company Number: 04P-163-0273339-00

PATIENT
  Age: 71 Year
  Sex: Female

DRUGS (9)
  1. HUMIRA [Suspect]
     Indication: RHEUMATOID ARTHRITIS
     Dosage: 40 MG, 1 IN 2 WK, SUBCUTANEOUS
     Route: 058
     Dates: start: 20040701, end: 20040901
  2. CLOPIDOGREL BISULFATE [Concomitant]
  3. GLIPIZIDE [Concomitant]
  4. ROFECOXIB [Concomitant]
  5. SIMVASTATIN [Concomitant]
  6. GLIMEPIRIDE [Concomitant]
  7. CITALOPRAM HYDROBROMIDE [Concomitant]
  8. LISINOPRIL [Concomitant]
  9. MELOXICAM [Concomitant]

REACTIONS (1)
  - DEATH [None]
